FAERS Safety Report 23268961 (Version 1)
Quarter: 2023Q4

REPORT INFORMATION
  Report Type: Spontaneous
  Country: PL (occurrence: PL)
  Receive Date: 20231206
  Receipt Date: 20231206
  Transmission Date: 20240110
  Serious: Yes (Hospitalization, Other)
  Sender: FDA-Public Use
  Company Number: PL-009507513-2308POL000885

PATIENT
  Age: 75 Year
  Sex: Male

DRUGS (3)
  1. CISPLATIN [Suspect]
     Active Substance: CISPLATIN
     Indication: Lung adenocarcinoma
     Dosage: UNK
     Route: 065
     Dates: start: 20210930
  2. PEMETREXED [Suspect]
     Active Substance: PEMETREXED
     Indication: Lung adenocarcinoma
     Dosage: UNK
     Route: 065
     Dates: start: 20210930
  3. PEMBROLIZUMAB [Suspect]
     Active Substance: PEMBROLIZUMAB
     Indication: Lung adenocarcinoma
     Dosage: UNK
     Route: 065
     Dates: start: 20210930, end: 202303

REACTIONS (12)
  - Primary adrenal insufficiency [Recovering/Resolving]
  - Transitional cell carcinoma [Unknown]
  - Hypothyroidism [Recovering/Resolving]
  - Hypothyroidism [Unknown]
  - Malignant neoplasm progression [Unknown]
  - Ventricular extrasystoles [Recovered/Resolved]
  - Inflammatory marker increased [Recovering/Resolving]
  - Hyponatraemia [Unknown]
  - Rash papular [Recovered/Resolved]
  - Vomiting [Unknown]
  - Nausea [Unknown]
  - Product use in unapproved indication [Unknown]

NARRATIVE: CASE EVENT DATE: 20210101
